FAERS Safety Report 12668426 (Version 1)
Quarter: 2016Q3

REPORT INFORMATION
  Report Type: Spontaneous
  Country: US (occurrence: US)
  Receive Date: 20160819
  Receipt Date: 20160819
  Transmission Date: 20161109
  Serious: No
  Sender: FDA-Public Use
  Company Number: US-PERNIX THERAPEUTICS-2016PT000110

PATIENT

DRUGS (2)
  1. ZOHYDRO [Suspect]
     Active Substance: HYDROCODONE BITARTRATE
     Indication: INTERVERTEBRAL DISC DEGENERATION
     Dosage: 40 MG, TWICE DAILY
     Route: 048
     Dates: start: 2016
  2. ZOHYDRO [Suspect]
     Active Substance: HYDROCODONE BITARTRATE
     Dosage: UNK
     Dates: start: 201604

REACTIONS (2)
  - Abdominal pain upper [Not Recovered/Not Resolved]
  - Eructation [Not Recovered/Not Resolved]

NARRATIVE: CASE EVENT DATE: 201604
